FAERS Safety Report 5232831-2 (Version None)
Quarter: 2007Q1

REPORT INFORMATION
  Report Type: 
  Country: None (occurrence: None)
  Receive Date: 20070206
  Receipt Date: 20070206
  Transmission Date: 20070707
  Serious: Yes (Other)
  Sender: FDA-Public Use
  Company Number: None

PATIENT
  Age: 51 Year
  Sex: Female
  Weight: 86.1834 kg

DRUGS (1)
  1. ZOLMITRIPTAN   5MG [Suspect]
     Indication: MIGRAINE
     Dosage: 5MG  SINGLE DOSAGE  NASAL
     Route: 045
     Dates: start: 20060601, end: 20060601

REACTIONS (1)
  - BLOOD PRESSURE INCREASED [None]
